FAERS Safety Report 4639177-1 (Version None)
Quarter: 2005Q2

REPORT INFORMATION
  Report Type: 
  Country: None (occurrence: None)
  Receive Date: 20050418
  Receipt Date: 20050405
  Transmission Date: 20051028
  Serious: Yes (Hospitalization, Disabling)
  Sender: FDA-Public Use
  Company Number: 200510886GDS

PATIENT
  Age: 55 Year
  Sex: Male
  Weight: 72 kg

DRUGS (5)
  1. ASPIRIN [Suspect]
     Indication: ACUTE MYOCARDIAL INFARCTION
     Dosage: 200 MG, TOTAL DAILY
     Dates: start: 20021030
  2. PAMITEPLASE (TISSUE PLASMINOGEN ACTIVATOR, RECOMINATIVE) [Suspect]
     Indication: ACUTE MYOCARDIAL INFARCTION
     Dosage: 468000 U, TOTAL DAILY, INTRAVENOUS
     Route: 042
     Dates: start: 20021030
  3. HEPARIN [Suspect]
     Indication: ACUTE MYOCARDIAL INFARCTION
     Dosage: 5000 U, TOTAL DAILY, INTRAVENOUS
     Route: 042
     Dates: start: 20021030
  4. TICLOPIDINE [Suspect]
     Indication: ANTICOAGULANT THERAPY
     Dosage: 200 MG, TOTAL DAILY, ORAL
     Route: 048
     Dates: start: 20020101
  5. CILOSTAZOL [Suspect]
     Indication: ANTICOAGULANT THERAPY
     Dosage: 200 MG, TOTAL DAILY, ORAL
     Route: 048
     Dates: start: 20020101

REACTIONS (11)
  - ANTIPHOSPHOLIPID ANTIBODIES POSITIVE [None]
  - CEREBRAL HAEMORRHAGE [None]
  - CORONARY ARTERY STENOSIS [None]
  - DEEP VEIN THROMBOSIS [None]
  - DEPRESSED LEVEL OF CONSCIOUSNESS [None]
  - DRUG INTERACTION [None]
  - HEMIPLEGIA [None]
  - INTRACRANIAL PRESSURE INCREASED [None]
  - OXYGEN SATURATION DECREASED [None]
  - PULMONARY EMBOLISM [None]
  - VENTRICULAR HYPOKINESIA [None]
